FAERS Safety Report 22399225 (Version 1)
Quarter: 2023Q2

REPORT INFORMATION
  Report Type: Spontaneous
  Country: US (occurrence: US)
  Receive Date: 20230602
  Receipt Date: 20230602
  Transmission Date: 20230722
  Serious: Yes (Hospitalization)
  Sender: FDA-Public Use
  Company Number: US-MYLANLABS-2023M1056545

PATIENT
  Age: 77 Year
  Sex: Female

DRUGS (5)
  1. OMEPRAZOLE [Suspect]
     Active Substance: OMEPRAZOLE
     Indication: Lymphocytic oesophagitis
     Dosage: 20 MILLIGRAM, BID
     Route: 065
  2. OMEPRAZOLE [Suspect]
     Active Substance: OMEPRAZOLE
     Dosage: 20 MILLIGRAM, QD, LOW-DOSE
     Route: 065
  3. BUDESONIDE [Suspect]
     Active Substance: BUDESONIDE
     Indication: Lymphocytic oesophagitis
     Dosage: 2 MILLIGRAM, BID
     Route: 048
  4. BUDESONIDE [Suspect]
     Active Substance: BUDESONIDE
     Dosage: 1 MILLIGRAM, BID
     Route: 048
  5. BUDESONIDE [Suspect]
     Active Substance: BUDESONIDE
     Dosage: 0.5 MILLIGRAM, BID
     Route: 048

REACTIONS (2)
  - Drug ineffective [Unknown]
  - Off label use [Unknown]
